FAERS Safety Report 16332730 (Version 1)
Quarter: 2019Q2

REPORT INFORMATION
  Report Type: Spontaneous
  Country: US (occurrence: US)
  Receive Date: 20190412
  Receipt Date: 20190412
  Transmission Date: 20190711
  Serious: Yes (Hospitalization)
  Sender: FDA-Public Use
  Company Number: None

PATIENT
  Age: 59 Year
  Sex: Female

DRUGS (11)
  1. LASIX [Concomitant]
     Active Substance: FUROSEMIDE
  2. METOLAZONE. [Concomitant]
     Active Substance: METOLAZONE
  3. SPIRONOLACTONE. [Concomitant]
     Active Substance: SPIRONOLACTONE
  4. PRILOSEC [Concomitant]
     Active Substance: OMEPRAZOLE MAGNESIUM
  5. K-TAB [Concomitant]
     Active Substance: POTASSIUM CHLORIDE
  6. VELETRI [Concomitant]
     Active Substance: EPOPROSTENOL
  7. DIGOXIN. [Concomitant]
     Active Substance: DIGOXIN
  8. OPSUMIT [Suspect]
     Active Substance: MACITENTAN
     Indication: PULMONARY ARTERIAL HYPERTENSION
     Route: 048
     Dates: start: 201412
  9. MORPHINE [Concomitant]
     Active Substance: MORPHINE
  10. NALOXONE [Concomitant]
     Active Substance: NALOXONE
  11. PAXIL [Concomitant]
     Active Substance: PAROXETINE HYDROCHLORIDE

REACTIONS (2)
  - Cor pulmonale [None]
  - Condition aggravated [None]

NARRATIVE: CASE EVENT DATE: 20190404
